FAERS Safety Report 5127934-7 (Version None)
Quarter: 2006Q4

REPORT INFORMATION
  Report Type: 
  Country: None (occurrence: None)
  Receive Date: 20061013
  Receipt Date: 20061013
  Transmission Date: 20070319
  Serious: No
  Sender: FDA-Public Use
  Company Number: None

PATIENT
  Age: 61 Year
  Sex: Male

DRUGS (2)
  1. LISINOPRIL [Suspect]
     Dosage: 10MG QD PO   5MG STARTED 4/26 10MG 5/19
     Route: 048
     Dates: start: 20060426
  2. LISINOPRIL [Suspect]
     Dosage: 10MG QD PO   5MG STARTED 4/26 10MG 5/19
     Route: 048
     Dates: start: 20060519

REACTIONS (1)
  - ANGIONEUROTIC OEDEMA [None]
